FAERS Safety Report 9157131 (Version 1)
Quarter: 2013Q1

REPORT INFORMATION
  Report Type: Spontaneous
  Country: US (occurrence: None)
  Receive Date: 20130204
  Receipt Date: 20130204
  Transmission Date: 20140127
  Serious: Yes (Other)
  Sender: FDA-Public Use
  Company Number: METF20130001

PATIENT
  Age: 59 Year
  Sex: Female

DRUGS (15)
  1. METFORMIN HYDROCHLORIDE [Suspect]
     Indication: DIABETES MELLITUS MANAGEMENT
  2. LISINOPRIL TABLETS (LISINOPRIL) [Concomitant]
  3. PROMETHAZINE HYDROCHLORIDE [Concomitant]
  4. LORAZEPAM TABLETS (LORAZEPAM) [Concomitant]
  5. HYDROCODONE/ACETAMINOPHEN (PARACETAMOL, HYDROCODONE BITARTRATE) [Concomitant]
  6. LEVOTHYROXINE (LEVOTHYROXINE0 [Concomitant]
  7. INSULIN DETEMIR (INSULIN DETEMIR) [Concomitant]
  8. INSULIN ASPART (INSULIN ASPART) [Concomitant]
  9. ALENDRONATE (ALENDRONATE SODIUM) [Concomitant]
  10. ASPIRIN (ACETYLSALICYLIC ACID) [Concomitant]
  11. SIMVASTATIN (SIMVASTATIN) [Concomitant]
  12. CYANOCOBALAMIN( CYANOCOBALAMIN) [Concomitant]
  13. CITALOPRAM (CITALOPRAM) [Concomitant]
  14. VITAMIN C [Concomitant]
  15. CALCIUM + VITAMIN D (COLECALCIFEROL, CALCIUM) [Concomitant]

REACTIONS (4)
  - Pancreatitis [None]
  - Nausea [None]
  - Hypophagia [None]
  - Biliary colic [None]
